FAERS Safety Report 4429194-9 (Version None)
Quarter: 2004Q3

REPORT INFORMATION
  Report Type: 
  Country: None (occurrence: None)
  Receive Date: 20040726
  Receipt Date: 20040423
  Transmission Date: 20050211
  Serious: No
  Sender: FDA-Public Use
  Company Number: USA040258294

PATIENT
  Age: 83 Year
  Sex: Female
  Weight: 55 kg

DRUGS (7)
  1. FORTEO [Suspect]
     Indication: OSTEOPOROSIS
     Dosage: 20 UG DAY
     Dates: start: 20040101, end: 20040208
  2. EVISTA [Suspect]
     Indication: OSTEOPOROSIS
  3. FOSAMAX [Concomitant]
  4. SYNTHROID [Concomitant]
  5. CELEBREX [Concomitant]
  6. AMBIEN [Concomitant]
  7. CLINORIL [Concomitant]

REACTIONS (4)
  - ASTHENIA [None]
  - CARDIAC DISORDER [None]
  - MUSCLE CRAMP [None]
  - PALPITATIONS [None]
